FAERS Safety Report 11391955 (Version 1)
Quarter: 2015Q3

REPORT INFORMATION
  Report Type: Spontaneous
  Country: TR (occurrence: None)
  Receive Date: 20150814
  Receipt Date: 20150814
  Transmission Date: 20151125
  Serious: Yes (Hospitalization)
  Sender: FDA-Public Use
  Company Number: 2015AJ00028

PATIENT
  Age: 74 Year
  Sex: Male

DRUGS (6)
  1. TRANDOLAPRIL. [Concomitant]
     Active Substance: TRANDOLAPRIL
  2. CARVEDILOL. [Concomitant]
     Active Substance: CARVEDILOL
  3. LEVETIRACTAM [Suspect]
     Active Substance: LEVETIRACETAM
     Indication: EPILEPSY
     Route: 048
  4. WARFARIN [Concomitant]
     Active Substance: WARFARIN
  5. FUROSEMIDE. [Concomitant]
     Active Substance: FUROSEMIDE
  6. SPIROLACTONE/HYDROCHLOROTHIAZIDE [Concomitant]

REACTIONS (5)
  - Hyponatraemia [None]
  - Inappropriate antidiuretic hormone secretion [None]
  - Lethargy [None]
  - Decreased appetite [None]
  - Confusional state [None]

NARRATIVE: CASE EVENT DATE: 201504
